FAERS Safety Report 20376631 (Version 2)
Quarter: 2022Q1

REPORT INFORMATION
  Report Type: Spontaneous
  Country: AT (occurrence: AT)
  Receive Date: 20220125
  Receipt Date: 20220131
  Transmission Date: 20220423
  Serious: Yes (Other)
  Sender: FDA-Public Use
  Company Number: AT-ALXN-A202106295

PATIENT
  Sex: Female
  Weight: 74 kg

DRUGS (7)
  1. SOLIRIS [Suspect]
     Active Substance: ECULIZUMAB
     Indication: Atypical haemolytic uraemic syndrome
     Dosage: 900 MG, QW
     Route: 065
     Dates: start: 20210528, end: 20210604
  2. PROGESTERONE [Concomitant]
     Active Substance: PROGESTERONE
     Indication: Product used for unknown indication
     Route: 065
  3. ASCORBIC ACID\CALCIUM PHOSPHATE\CHOLECALCIFEROL\CITRIC ACID MONOHYDRAT [Concomitant]
     Active Substance: ASCORBIC ACID\CALCIUM PHOSPHATE\CHOLECALCIFEROL\CITRIC ACID MONOHYDRATE
     Indication: Product used for unknown indication
     Route: 065
  4. FEMIBION                           /07499601/ [Concomitant]
     Indication: Product used for unknown indication
     Route: 065
  5. IRON [Concomitant]
     Active Substance: IRON
     Indication: Product used for unknown indication
     Route: 065
  6. OSPEXIN [Concomitant]
     Indication: Product used for unknown indication
     Dosage: UNK, AT START OF SOLIRIS
     Route: 065
  7. UTROGESTAN [Concomitant]
     Active Substance: PROGESTERONE
     Indication: Product used for unknown indication
     Dosage: UNK
     Route: 065

REACTIONS (2)
  - Caesarean section [Unknown]
  - Exposure during pregnancy [Unknown]
